FAERS Safety Report 9263855 (Version 4)
Quarter: 2013Q3

REPORT INFORMATION
  Report Type: Spontaneous
  Country: JP (occurrence: JP)
  Receive Date: 20130430
  Receipt Date: 20130906
  Transmission Date: 20140515
  Serious: Yes (Death, Hospitalization)
  Sender: FDA-Public Use
  Company Number: JP-ABBOTT-13P-087-1083092-00

PATIENT
  Age: 80 Year
  Sex: Male

DRUGS (5)
  1. ADALIMUMAB [Suspect]
     Indication: PRODUCT USED FOR UNKNOWN INDICATION
     Dates: start: 20110113, end: 20111031
  2. ADALIMUMAB [Suspect]
     Dates: start: 20111108, end: 20111122
  3. LEVOFLOXACIN [Concomitant]
     Indication: INTERSTITIAL LUNG DISEASE
  4. PREDNISOLONE [Concomitant]
     Indication: RHEUMATOID ARTHRITIS
     Route: 048
     Dates: start: 20100531
  5. MIZORIBINE [Concomitant]
     Indication: RHEUMATOID ARTHRITIS
     Route: 048
     Dates: start: 20101220, end: 20111126

REACTIONS (4)
  - Pulmonary alveolar haemorrhage [Fatal]
  - Rhinorrhoea [Recovered/Resolved]
  - Cough [Recovered/Resolved]
  - Productive cough [Recovered/Resolved]
